FAERS Safety Report 12716341 (Version 1)
Quarter: 2016Q3

REPORT INFORMATION
  Report Type: Report from Study
  Country: US (occurrence: US)
  Receive Date: 20160906
  Receipt Date: 20160906
  Transmission Date: 20161109
  Serious: Yes (Other)
  Sender: FDA-Public Use
  Company Number: US-ROCHE-1825815

PATIENT
  Age: 62 Year
  Sex: Female
  Weight: 85.8 kg

DRUGS (38)
  1. BEVACIZUMAB [Suspect]
     Active Substance: BEVACIZUMAB
     Route: 065
     Dates: start: 20140825
  2. IXABEPILONE [Suspect]
     Active Substance: IXABEPILONE
     Route: 065
     Dates: start: 20140714
  3. IXABEPILONE [Suspect]
     Active Substance: IXABEPILONE
     Route: 065
     Dates: start: 20150309
  4. IXABEPILONE [Suspect]
     Active Substance: IXABEPILONE
     Route: 065
     Dates: start: 20150406
  5. IXABEPILONE [Suspect]
     Active Substance: IXABEPILONE
     Route: 065
     Dates: start: 20150512
  6. BEVACIZUMAB [Suspect]
     Active Substance: BEVACIZUMAB
     Route: 065
     Dates: start: 20150309
  7. BEVACIZUMAB [Suspect]
     Active Substance: BEVACIZUMAB
     Route: 065
     Dates: start: 20150629
  8. IXABEPILONE [Suspect]
     Active Substance: IXABEPILONE
     Route: 065
     Dates: start: 20140825
  9. IXABEPILONE [Suspect]
     Active Substance: IXABEPILONE
     Route: 065
     Dates: start: 20141020
  10. BEVACIZUMAB [Suspect]
     Active Substance: BEVACIZUMAB
     Route: 065
     Dates: start: 20141117
  11. BEVACIZUMAB [Suspect]
     Active Substance: BEVACIZUMAB
     Route: 065
     Dates: start: 20150824
  12. BEVACIZUMAB [Suspect]
     Active Substance: BEVACIZUMAB
     Indication: CLEAR CELL RENAL CELL CARCINOMA
     Dosage: LAST TREATMENT DATE: 25/SEP/2015
     Route: 065
     Dates: start: 20140603
  13. BEVACIZUMAB [Suspect]
     Active Substance: BEVACIZUMAB
     Route: 065
     Dates: start: 20140922
  14. BEVACIZUMAB [Suspect]
     Active Substance: BEVACIZUMAB
     Route: 065
     Dates: start: 20141020
  15. BEVACIZUMAB [Suspect]
     Active Substance: BEVACIZUMAB
     Route: 065
     Dates: start: 20150112
  16. BEVACIZUMAB [Suspect]
     Active Substance: BEVACIZUMAB
     Route: 065
     Dates: start: 20150512
  17. IXABEPILONE [Suspect]
     Active Substance: IXABEPILONE
     Route: 065
     Dates: start: 20141117
  18. IXABEPILONE [Suspect]
     Active Substance: IXABEPILONE
     Route: 065
     Dates: start: 20141215
  19. IXABEPILONE [Suspect]
     Active Substance: IXABEPILONE
     Route: 065
     Dates: start: 20150112
  20. IXABEPILONE [Suspect]
     Active Substance: IXABEPILONE
     Route: 065
     Dates: start: 20150608
  21. IXABEPILONE [Suspect]
     Active Substance: IXABEPILONE
     Route: 065
     Dates: start: 20150629
  22. IXABEPILONE [Suspect]
     Active Substance: IXABEPILONE
     Route: 065
     Dates: start: 20150803
  23. IXABEPILONE [Suspect]
     Active Substance: IXABEPILONE
     Route: 065
     Dates: start: 20150824
  24. IXABEPILONE [Suspect]
     Active Substance: IXABEPILONE
     Route: 065
     Dates: start: 20150921
  25. BEVACIZUMAB [Suspect]
     Active Substance: BEVACIZUMAB
     Route: 065
     Dates: start: 20141215
  26. BEVACIZUMAB [Suspect]
     Active Substance: BEVACIZUMAB
     Route: 065
     Dates: start: 20150608
  27. BEVACIZUMAB [Suspect]
     Active Substance: BEVACIZUMAB
     Route: 065
     Dates: start: 20150803
  28. IXABEPILONE [Suspect]
     Active Substance: IXABEPILONE
     Route: 065
     Dates: start: 20140623
  29. IXABEPILONE [Suspect]
     Active Substance: IXABEPILONE
     Route: 065
     Dates: start: 20140922
  30. IXABEPILONE [Suspect]
     Active Substance: IXABEPILONE
     Route: 065
     Dates: start: 20150209
  31. BEVACIZUMAB [Suspect]
     Active Substance: BEVACIZUMAB
     Route: 065
     Dates: start: 20140623
  32. BEVACIZUMAB [Suspect]
     Active Substance: BEVACIZUMAB
     Route: 065
     Dates: start: 20140714
  33. BEVACIZUMAB [Suspect]
     Active Substance: BEVACIZUMAB
     Route: 065
     Dates: start: 20140805
  34. IXABEPILONE [Suspect]
     Active Substance: IXABEPILONE
     Indication: CLEAR CELL RENAL CELL CARCINOMA
     Route: 065
     Dates: start: 20140603
  35. IXABEPILONE [Suspect]
     Active Substance: IXABEPILONE
     Route: 065
     Dates: start: 20140805
  36. BEVACIZUMAB [Suspect]
     Active Substance: BEVACIZUMAB
     Route: 065
     Dates: start: 20150209
  37. BEVACIZUMAB [Suspect]
     Active Substance: BEVACIZUMAB
     Route: 065
     Dates: start: 20150406
  38. BEVACIZUMAB [Suspect]
     Active Substance: BEVACIZUMAB
     Route: 065
     Dates: start: 20150921

REACTIONS (1)
  - Activated partial thromboplastin time prolonged [Unknown]
